FAERS Safety Report 10251468 (Version 1)
Quarter: 2014Q2

REPORT INFORMATION
  Report Type: Spontaneous
  Country: US (occurrence: US)
  Receive Date: 20140623
  Receipt Date: 20140623
  Transmission Date: 20141212
  Serious: Yes (Other)
  Sender: FDA-Public Use
  Company Number: US-AMGEN INC.-USASP2014045667

PATIENT
  Age: 49 Year
  Sex: Female

DRUGS (1)
  1. ENBREL [Suspect]
     Indication: PSORIASIS
     Dosage: 50 MG, QWK
     Route: 065
     Dates: start: 20120419, end: 2013

REACTIONS (10)
  - Hepatitis C [Unknown]
  - Weight decreased [Not Recovered/Not Resolved]
  - Anxiety [Not Recovered/Not Resolved]
  - Stress [Not Recovered/Not Resolved]
  - Ill-defined disorder [Not Recovered/Not Resolved]
  - Hyperaesthesia [Recovered/Resolved]
  - Adverse event [Recovered/Resolved]
  - Injection site haemorrhage [Recovered/Resolved]
  - Psoriasis [Not Recovered/Not Resolved]
  - Fungal skin infection [Not Recovered/Not Resolved]
